FAERS Safety Report 9285517 (Version 1)
Quarter: 2013Q2

REPORT INFORMATION
  Report Type: Spontaneous
  Country: US (occurrence: None)
  Receive Date: 20130510
  Receipt Date: 20130510
  Transmission Date: 20140414
  Serious: No
  Sender: FDA-Public Use
  Company Number: None

PATIENT
  Age: 60 Year
  Sex: Female
  Weight: 117.94 kg

DRUGS (2)
  1. OCTAGAM [Suspect]
     Indication: IMMUNODEFICIENCY COMMON VARIABLE
     Route: 041
     Dates: start: 20060801, end: 20130502
  2. OCTAGAM 5% 10GRAM [Concomitant]

REACTIONS (7)
  - Hypertension [None]
  - Speech disorder [None]
  - Dyspnoea [None]
  - Muscle spasms [None]
  - Arthropathy [None]
  - Myalgia [None]
  - Arthralgia [None]
